FAERS Safety Report 15561161 (Version 2)
Quarter: 2018Q4

REPORT INFORMATION
  Report Type: Spontaneous
  Country: US (occurrence: US)
  Receive Date: 20181029
  Receipt Date: 20181204
  Transmission Date: 20190205
  Serious: No
  Sender: FDA-Public Use
  Company Number: US-PFIZER INC-2018440145

PATIENT
  Age: 39 Year
  Sex: Female

DRUGS (3)
  1. DILANTIN [Suspect]
     Active Substance: PHENYTOIN
     Indication: LUPUS-LIKE SYNDROME
     Dosage: 100 MG, 3X/DAY
     Dates: start: 1998
  2. AZATHIOPRINE. [Concomitant]
     Active Substance: AZATHIOPRINE
     Indication: LUPUS-LIKE SYNDROME
     Dosage: 50 MG, 2X/DAY
     Dates: start: 1998
  3. PREDNISONE. [Concomitant]
     Active Substance: PREDNISONE
     Indication: LUPUS-LIKE SYNDROME
     Dosage: 5 MG, 1X/DAY
     Dates: start: 2018

REACTIONS (2)
  - Malaise [Unknown]
  - Product use in unapproved indication [Unknown]
